FAERS Safety Report 19604269 (Version 16)
Quarter: 2022Q1

REPORT INFORMATION
  Report Type: Spontaneous
  Country: GB (occurrence: GB)
  Receive Date: 20210723
  Receipt Date: 20220106
  Transmission Date: 20220423
  Serious: Yes (Life-Threatening, Hospitalization, Disabling, Other)
  Sender: FDA-Public Use
  Company Number: GB-ORGANON-O2107GBR001922

PATIENT
  Age: 31 Year
  Sex: Female
  Weight: 63.497 kg

DRUGS (72)
  1. MIRTAZAPINE [Interacting]
     Active Substance: MIRTAZAPINE
     Indication: Depression
     Dosage: 30 MG, QD (TABLET)
     Route: 048
     Dates: start: 20100923, end: 20101108
  2. MIRTAZAPINE [Interacting]
     Active Substance: MIRTAZAPINE
     Dosage: 30 MILLIGRAM, QD
     Route: 048
     Dates: start: 20101007, end: 20101012
  3. MIRTAZAPINE [Interacting]
     Active Substance: MIRTAZAPINE
     Dosage: 30MG IN THE DAY AND 15MG AT NIGHT DISCONTINUED AFTER 1 WEEK DUE TO SICKNESS LEGACY
     Route: 065
     Dates: start: 20110224, end: 20110506
  4. CODEINE [Suspect]
     Active Substance: CODEINE
     Indication: Analgesic therapy
     Dosage: UNK
     Route: 048
     Dates: start: 2002, end: 2002
  5. CODEINE [Suspect]
     Active Substance: CODEINE
     Indication: Serotonin syndrome
     Dosage: UNK
     Route: 048
     Dates: start: 2008, end: 2008
  6. CODEINE [Suspect]
     Active Substance: CODEINE
     Indication: Analgesic therapy
     Dosage: UNSURE
     Route: 048
     Dates: start: 20110615, end: 20110723
  7. CODEINE [Suspect]
     Active Substance: CODEINE
     Dosage: UNK
     Dates: start: 20110224, end: 20110506
  8. CODEINE [Suspect]
     Active Substance: CODEINE
     Dosage: UNK
     Route: 048
     Dates: start: 20110224, end: 20110410
  9. CODEINE [Suspect]
     Active Substance: CODEINE
     Dosage: UNK
  10. PAROXETINE HYDROCHLORIDE [Suspect]
     Active Substance: PAROXETINE HYDROCHLORIDE
     Indication: Product used for unknown indication
     Dosage: 20 MG, TID
     Dates: start: 1997
  11. PAROXETINE HYDROCHLORIDE [Suspect]
     Active Substance: PAROXETINE HYDROCHLORIDE
     Indication: Depression
     Dosage: 20MG THREE TIMES PER DAY
     Route: 048
     Dates: start: 19990801, end: 201105
  12. PAROXETINE HYDROCHLORIDE [Suspect]
     Active Substance: PAROXETINE HYDROCHLORIDE
     Indication: Product used for unknown indication
     Dosage: UNK
     Route: 048
     Dates: start: 20081201, end: 20101210
  13. PAROXETINE HYDROCHLORIDE [Suspect]
     Active Substance: PAROXETINE HYDROCHLORIDE
     Dosage: DOSAGE FORM: UNSPECIFIED
     Route: 048
     Dates: start: 201105, end: 20110706
  14. PAROXETINE HYDROCHLORIDE [Suspect]
     Active Substance: PAROXETINE HYDROCHLORIDE
     Dosage: 20 MG, BID
     Route: 048
     Dates: start: 2011, end: 20110706
  15. PAROXETINE HYDROCHLORIDE [Suspect]
     Active Substance: PAROXETINE HYDROCHLORIDE
     Dosage: 40 MILLIGRAM, QD
     Route: 048
     Dates: start: 201105, end: 20110706
  16. PAROXETINE HYDROCHLORIDE [Suspect]
     Active Substance: PAROXETINE HYDROCHLORIDE
     Dosage: UNK
     Route: 048
     Dates: start: 201112
  17. DIAZEPAM [Suspect]
     Active Substance: DIAZEPAM
     Indication: Depression
     Dosage: 5 MG, QID
     Route: 065
     Dates: start: 20110725
  18. DIAZEPAM [Suspect]
     Active Substance: DIAZEPAM
     Indication: Muscle spasms
     Dosage: 8 MILLIGRAM, QD, PREFERRED PRODUCT DESCRIPTION: TRAMADOL THERAPY END FLAG: DRUG NO LONGER ADMINISTER
     Route: 065
     Dates: start: 20110725
  19. DIAZEPAM [Suspect]
     Active Substance: DIAZEPAM
     Indication: Serotonin syndrome
     Dosage: UNK
     Route: 048
     Dates: start: 20110725
  20. DIAZEPAM [Suspect]
     Active Substance: DIAZEPAM
     Indication: Muscle spasms
     Dosage: 20 MG, QD 5 MILLIGRAM, QID (5 MG QDS AND NOW ON 2-2-4 MG), PREFERRED PRODUCT DESCRIPTION: TRAMADOL T
     Route: 048
     Dates: start: 20110725
  21. DIAZEPAM [Suspect]
     Active Substance: DIAZEPAM
     Dosage: 8 MG, QD
     Route: 065
  22. DIAZEPAM [Suspect]
     Active Substance: DIAZEPAM
     Dosage: DOSAGE FORM: UNSPECIFIED
     Route: 065
  23. DIAZEPAM [Suspect]
     Active Substance: DIAZEPAM
     Dosage: 8 MILLIGRAM
     Route: 065
  24. PAROXETINE [Suspect]
     Active Substance: PAROXETINE
     Indication: Depression
     Dosage: 60 MILLIGRAM
     Route: 048
     Dates: start: 1997, end: 201105
  25. PAROXETINE [Suspect]
     Active Substance: PAROXETINE
     Indication: Post-traumatic stress disorder
     Dosage: 20 MG THREE TIMES A DAY (PHARMACEUTICAL DOSAGE FORM:TABLET)
     Route: 048
     Dates: start: 19990801, end: 201105
  26. PAROXETINE [Suspect]
     Active Substance: PAROXETINE
     Dosage: UNK
     Route: 048
     Dates: start: 19990801, end: 20110706
  27. PAROXETINE [Suspect]
     Active Substance: PAROXETINE
     Dosage: UNK
     Route: 048
     Dates: start: 1996
  28. PAROXETINE [Suspect]
     Active Substance: PAROXETINE
     Dosage: 40 MILLIGRAM
     Route: 048
     Dates: start: 201105, end: 20110706
  29. PROCYCLIDINE HYDROCHLORIDE [Interacting]
     Active Substance: PROCYCLIDINE HYDROCHLORIDE
     Indication: Extrapyramidal disorder
     Dosage: 5 MILLIGRAM, QD
     Route: 048
     Dates: start: 1995, end: 1996
  30. PROCYCLIDINE HYDROCHLORIDE [Interacting]
     Active Substance: PROCYCLIDINE HYDROCHLORIDE
     Indication: Oculogyric crisis
     Dosage: 5 MILLIGRAM, Q24H
     Route: 048
     Dates: start: 1995, end: 1996
  31. PROCYCLIDINE HYDROCHLORIDE [Interacting]
     Active Substance: PROCYCLIDINE HYDROCHLORIDE
     Dosage: 15 MILLIGRAM
     Route: 048
     Dates: start: 20110503, end: 20110510
  32. PROCYCLIDINE HYDROCHLORIDE [Interacting]
     Active Substance: PROCYCLIDINE HYDROCHLORIDE
     Dosage: 20 MILLIGRAM
     Route: 048
     Dates: start: 20110324, end: 20110506
  33. PROCYCLIDINE HYDROCHLORIDE [Interacting]
     Active Substance: PROCYCLIDINE HYDROCHLORIDE
     Dosage: IN 1ST TRIMESTER
     Route: 065
     Dates: start: 20110415
  34. PROCYCLIDINE HYDROCHLORIDE [Interacting]
     Active Substance: PROCYCLIDINE HYDROCHLORIDE
     Dosage: 5 MILLIGRAM, QD
     Route: 048
     Dates: start: 20110503, end: 20110510
  35. QUETIAPINE FUMARATE [Interacting]
     Active Substance: QUETIAPINE FUMARATE
     Indication: Psychotic disorder
     Dosage: 300 MILLIGRAM
     Route: 048
     Dates: start: 20110224, end: 20110506
  36. AMITRIPTYLINE HYDROCHLORIDE [Interacting]
     Active Substance: AMITRIPTYLINE HYDROCHLORIDE
     Indication: Muscle spasms
     Dosage: 25 MILLIGRAM, QD (AT NIGHT)
     Route: 065
     Dates: start: 20110810
  37. AMITRIPTYLINE HYDROCHLORIDE [Interacting]
     Active Substance: AMITRIPTYLINE HYDROCHLORIDE
     Indication: Neuralgia
     Dosage: AT NIGHT
     Route: 065
  38. AMITRIPTYLINE HYDROCHLORIDE [Interacting]
     Active Substance: AMITRIPTYLINE HYDROCHLORIDE
     Indication: Serotonin syndrome
     Dosage: AT NIGHT
     Route: 065
  39. AMITRIPTYLINE HYDROCHLORIDE [Interacting]
     Active Substance: AMITRIPTYLINE HYDROCHLORIDE
     Dosage: AT NIGHT
     Route: 065
  40. LORAZEPAM [Suspect]
     Active Substance: LORAZEPAM
     Indication: Sedation
     Dosage: 1 MILLIGRAM, QID
     Route: 048
     Dates: start: 20110224, end: 20110410
  41. LORAZEPAM [Suspect]
     Active Substance: LORAZEPAM
     Dosage: 1 MG, QID
     Route: 048
     Dates: start: 20110523, end: 20110627
  42. LORAZEPAM [Suspect]
     Active Substance: LORAZEPAM
     Dosage: 1 MILLIGRAM
     Route: 048
     Dates: start: 20110725
  43. LORAZEPAM [Suspect]
     Active Substance: LORAZEPAM
     Dosage: 4 MILLIGRAM
     Route: 048
     Dates: start: 20110224, end: 20110410
  44. LORAZEPAM [Suspect]
     Active Substance: LORAZEPAM
     Dosage: 4 MILLIGRAM
     Route: 048
     Dates: start: 20110523, end: 20110627
  45. TRAMADOL HYDROCHLORIDE [Suspect]
     Active Substance: TRAMADOL HYDROCHLORIDE
     Indication: Neck pain
     Dosage: 5 MG, QD
     Route: 044
     Dates: start: 1995, end: 1995
  46. TRAMADOL HYDROCHLORIDE [Suspect]
     Active Substance: TRAMADOL HYDROCHLORIDE
     Indication: Analgesic therapy
     Dosage: UNSPECIFIED, 50-100, 4 CYCLICAL
     Route: 048
     Dates: start: 20080722
  47. TRAMADOL HYDROCHLORIDE [Suspect]
     Active Substance: TRAMADOL HYDROCHLORIDE
     Indication: Back pain
     Dosage: 4 CYCLICAL, QD, UNSURE, 2008/2009, DRUG START/DRUG WITHDRAWN, DURATION OF DRUG ADMINISTRATION: 740 D
     Route: 048
     Dates: start: 20081201, end: 20101210
  48. TRAMADOL HYDROCHLORIDE [Suspect]
     Active Substance: TRAMADOL HYDROCHLORIDE
     Indication: Pain
     Dosage: 4 CYCLICAL, QD (50-100 MG QD)
     Route: 048
     Dates: start: 20081201, end: 20101210
  49. TRAMADOL HYDROCHLORIDE [Suspect]
     Active Substance: TRAMADOL HYDROCHLORIDE
     Dosage: UNK
     Route: 065
  50. TRAMADOL HYDROCHLORIDE [Suspect]
     Active Substance: TRAMADOL HYDROCHLORIDE
     Dosage: 8 MILLIGRAM, QD
     Route: 065
  51. TRAMADOL HYDROCHLORIDE [Suspect]
     Active Substance: TRAMADOL HYDROCHLORIDE
     Dosage: UNK
  52. CLONAZEPAM [Suspect]
     Active Substance: CLONAZEPAM
     Indication: Sedation
     Dosage: UNSURE
     Route: 048
     Dates: start: 20110224, end: 20110410
  53. CLONAZEPAM [Suspect]
     Active Substance: CLONAZEPAM
     Dosage: 15-30 MG
     Route: 048
     Dates: start: 20110615, end: 20110723
  54. PHOSPHORUS [Interacting]
     Active Substance: PHOSPHORUS
     Indication: Product used for unknown indication
     Dosage: UNK
  55. DOMPERIDONE [Suspect]
     Active Substance: DOMPERIDONE
     Indication: Product used for unknown indication
     Dosage: UNK
     Route: 065
  56. DOMPERIDONE [Suspect]
     Active Substance: DOMPERIDONE
     Indication: Product used for unknown indication
     Dosage: UNK
     Route: 048
  57. DOMPERIDONE [Suspect]
     Active Substance: DOMPERIDONE
     Dosage: UNK
     Route: 065
  58. DOMPERIDONE [Suspect]
     Active Substance: DOMPERIDONE
     Dosage: UNK
     Route: 065
     Dates: start: 20100923, end: 20101108
  59. OMEPRAZOLE [Suspect]
     Active Substance: OMEPRAZOLE
     Indication: Dyspepsia
     Dosage: 20 MILLIGRAM, QD
     Route: 065
     Dates: start: 20110525
  60. OMEPRAZOLE [Suspect]
     Active Substance: OMEPRAZOLE
     Indication: Parosmia
  61. AMITRIPTYLINE HYDROCHLORIDE [Interacting]
     Active Substance: AMITRIPTYLINE HYDROCHLORIDE
     Indication: Muscle spasms
     Dosage: UNK
     Route: 065
  62. AMITRIPTYLINE HYDROCHLORIDE [Interacting]
     Active Substance: AMITRIPTYLINE HYDROCHLORIDE
     Indication: Neuralgia
  63. AMITRIPTYLINE HYDROCHLORIDE [Interacting]
     Active Substance: AMITRIPTYLINE HYDROCHLORIDE
     Indication: Serotonin syndrome
  64. AMITRIPTYLINE [Suspect]
     Active Substance: AMITRIPTYLINE
     Indication: Muscle spasms
     Dosage: 25MG AT NIGHT
     Route: 065
     Dates: start: 20110810
  65. AMITRIPTYLINE [Suspect]
     Active Substance: AMITRIPTYLINE
     Indication: Neuralgia
  66. PROCYCLIDINE [Suspect]
     Active Substance: PROCYCLIDINE
     Indication: Oculogyric crisis
     Dosage: 5 MILLIGRAM
     Route: 048
     Dates: start: 20110503, end: 20110510
  67. PROCYCLIDINE [Suspect]
     Active Substance: PROCYCLIDINE
     Indication: Extrapyramidal disorder
     Dosage: 5 UNK
     Route: 065
     Dates: start: 1995, end: 1996
  68. PROCYCLIDINE [Suspect]
     Active Substance: PROCYCLIDINE
     Dosage: 20 MILLIGRAM
     Route: 048
     Dates: start: 20110324, end: 20110506
  69. PROCYCLIDINE [Suspect]
     Active Substance: PROCYCLIDINE
     Dosage: 20 MILLIGRAM, QD IN 1ST TRIMESTER
     Dates: start: 20110415
  70. PROCYCLIDINE [Suspect]
     Active Substance: PROCYCLIDINE
     Dosage: UNK
  71. QUETIAPINE [Suspect]
     Active Substance: QUETIAPINE
     Indication: Stress
     Dosage: UNK
     Route: 048
     Dates: start: 20110224, end: 20110506
  72. QUETIAPINE [Suspect]
     Active Substance: QUETIAPINE
     Dosage: UNK
     Route: 048
     Dates: start: 19990801, end: 20110706

REACTIONS (94)
  - Dyskinesia [Unknown]
  - Aphasia [Not Recovered/Not Resolved]
  - Depersonalisation/derealisation disorder [Not Recovered/Not Resolved]
  - Dissociation [Not Recovered/Not Resolved]
  - Toxicity to various agents [Unknown]
  - Psychotic disorder [Recovered/Resolved]
  - Muscle spasms [Not Recovered/Not Resolved]
  - H1N1 influenza [Unknown]
  - Muscle rigidity [Unknown]
  - Exposure during pregnancy [Unknown]
  - Sleep disorder [Unknown]
  - Parosmia [Unknown]
  - Schizophrenia [Unknown]
  - Mania [Unknown]
  - Cogwheel rigidity [Unknown]
  - Headache [Unknown]
  - Nightmare [Unknown]
  - Paralysis [Unknown]
  - Limb injury [Unknown]
  - Paraesthesia [Unknown]
  - Off label use [Unknown]
  - Drooling [Unknown]
  - Mood swings [Unknown]
  - Premature labour [Not Recovered/Not Resolved]
  - Pallor [Unknown]
  - Arthralgia [Unknown]
  - Neuroleptic malignant syndrome [Unknown]
  - Confusional state [Not Recovered/Not Resolved]
  - Emotional disorder [Unknown]
  - Speech disorder [Not Recovered/Not Resolved]
  - Seizure [Not Recovered/Not Resolved]
  - Vision blurred [Unknown]
  - Pruritus [Unknown]
  - Sensory loss [Unknown]
  - Tachycardia [Unknown]
  - Somnolence [Not Recovered/Not Resolved]
  - Dizziness [Unknown]
  - Drug withdrawal syndrome [Unknown]
  - Urinary retention [Unknown]
  - Asthenia [Unknown]
  - Hallucinations, mixed [Unknown]
  - Depression [Unknown]
  - Diarrhoea [Unknown]
  - Contusion [Unknown]
  - Balance disorder [Unknown]
  - Fatigue [Unknown]
  - Illness [Unknown]
  - Agitation [Unknown]
  - Hypoaesthesia [Not Recovered/Not Resolved]
  - Heart rate increased [Unknown]
  - Restlessness [Not Recovered/Not Resolved]
  - Decreased appetite [Unknown]
  - Swollen tongue [Unknown]
  - Skin discolouration [Not Recovered/Not Resolved]
  - Hypoaesthesia oral [Not Recovered/Not Resolved]
  - Cyanosis [Unknown]
  - Dyspnoea [Unknown]
  - Mydriasis [Unknown]
  - Menstrual disorder [Unknown]
  - Drug interaction [Unknown]
  - Tremor [Not Recovered/Not Resolved]
  - Serotonin syndrome [Not Recovered/Not Resolved]
  - Dystonia [Unknown]
  - Feeling of despair [Unknown]
  - Feeling jittery [Unknown]
  - Tinnitus [Unknown]
  - Suicidal ideation [Not Recovered/Not Resolved]
  - Pyrexia [Unknown]
  - Restless legs syndrome [Not Recovered/Not Resolved]
  - Anxiety [Unknown]
  - Swelling face [Unknown]
  - Drug ineffective [Unknown]
  - Therapeutic product ineffective [Unknown]
  - Hyperhidrosis [Unknown]
  - Gait disturbance [Unknown]
  - Gastric pH decreased [Unknown]
  - Incontinence [Not Recovered/Not Resolved]
  - Drug withdrawal syndrome [Unknown]
  - Musculoskeletal stiffness [Not Recovered/Not Resolved]
  - Eye pain [Unknown]
  - Disturbance in attention [Unknown]
  - Vomiting [Unknown]
  - Blood sodium decreased [Unknown]
  - Muscle disorder [Unknown]
  - Disorientation [Not Recovered/Not Resolved]
  - Delirium [Unknown]
  - Feeling of body temperature change [Unknown]
  - Visual impairment [Unknown]
  - Derealisation [Not Recovered/Not Resolved]
  - Contusion [Unknown]
  - Eye pain [Unknown]
  - Drug ineffective [Unknown]
  - Paralysis [Unknown]
  - Restlessness [Unknown]

NARRATIVE: CASE EVENT DATE: 20030101
